FAERS Safety Report 23243382 (Version 2)
Quarter: 2024Q1

REPORT INFORMATION
  Report Type: Other
  Country: CA (occurrence: CA)
  Receive Date: 20231130
  Receipt Date: 20240111
  Transmission Date: 20240410
  Serious: Yes (Other)
  Sender: FDA-Public Use
  Company Number: CA-APOTEX-2023AP016977

PATIENT
  Age: 65 Year
  Sex: Male

DRUGS (3)
  1. VALACYCLOVIR [Suspect]
     Active Substance: VALACYCLOVIR HYDROCHLORIDE
     Indication: Prophylaxis against transplant rejection
     Dosage: UNK
     Route: 065
  2. RINVOQ [Suspect]
     Active Substance: UPADACITINIB
     Indication: Dermatitis atopic
     Dosage: 15 MILLIGRAM, QD
     Route: 048
  3. RINVOQ [Suspect]
     Active Substance: UPADACITINIB
     Dosage: UNK
     Route: 048

REACTIONS (2)
  - Immune system disorder [Not Recovered/Not Resolved]
  - Corneal graft rejection [Not Recovered/Not Resolved]
